FAERS Safety Report 4831966-3 (Version None)
Quarter: 2005Q4

REPORT INFORMATION
  Report Type: 
  Country: None (occurrence: None)
  Receive Date: 20051118
  Receipt Date: 20041201
  Transmission Date: 20060501
  Serious: Yes (Death)
  Sender: FDA-Public Use
  Company Number: JP-JNJFOC-20041104522

PATIENT
  Age: 56 Year
  Sex: Female

DRUGS (8)
  1. FENTANYL CITRATE [Suspect]
     Route: 062
  2. FENTANYL CITRATE [Suspect]
     Route: 062
  3. FENTANYL CITRATE [Suspect]
     Route: 062
  4. FENTANYL CITRATE [Suspect]
     Route: 062
  5. FENTANYL CITRATE [Suspect]
     Indication: CANCER PAIN
     Route: 062
  6. FENTANYL [Concomitant]
     Route: 058
  7. FENTANYL [Concomitant]
     Route: 058
  8. FENTANYL [Concomitant]
     Indication: PAIN
     Route: 058

REACTIONS (9)
  - APPLICATION SITE PRURITUS [None]
  - DERMATITIS CONTACT [None]
  - HAEMORRHAGE SUBCUTANEOUS [None]
  - METASTASES TO LUNG [None]
  - PLEURAL EFFUSION [None]
  - RECTAL CANCER [None]
  - RESPIRATORY DEPRESSION [None]
  - SKIN ATROPHY [None]
  - SOMNOLENCE [None]
